FAERS Safety Report 5699227-0 (Version None)
Quarter: 2008Q2

REPORT INFORMATION
  Report Type: 
  Country: None (occurrence: None)
  Receive Date: 20080408
  Receipt Date: 20080408
  Transmission Date: 20081010
  Serious: No
  Sender: FDA-Public Use
  Company Number: None

PATIENT
  Age: 38 Year
  Sex: Female

DRUGS (9)
  1. AUGMENTIN '125' [Suspect]
     Dates: start: 20070828, end: 20070906
  2. ISONIAZID [Suspect]
     Dates: start: 20070807, end: 20071003
  3. TRI SPRINTEC BIRTH CONTROL PILLS [Concomitant]
  4. DUONEB [Concomitant]
  5. PREDNISONE [Concomitant]
  6. HYDROXYZINE [Concomitant]
  7. ALBUTEROL [Concomitant]
  8. MOTRIN [Concomitant]
  9. LEVAQUIN [Concomitant]

REACTIONS (7)
  - ALANINE AMINOTRANSFERASE INCREASED [None]
  - ASPARTATE AMINOTRANSFERASE INCREASED [None]
  - BLOOD ALKALINE PHOSPHATASE INCREASED [None]
  - BLOOD BILIRUBIN INCREASED [None]
  - BRONCHITIS [None]
  - LIVER INJURY [None]
  - UPPER RESPIRATORY TRACT INFECTION [None]
